FAERS Safety Report 25170395 (Version 1)
Quarter: 2025Q2

REPORT INFORMATION
  Report Type: Spontaneous
  Country: US (occurrence: US)
  Receive Date: 20250408
  Receipt Date: 20250408
  Transmission Date: 20250717
  Serious: No
  Sender: ALVOGEN
  Company Number: US-ALVOGEN-2024094616

PATIENT
  Sex: Female

DRUGS (9)
  1. ESTRADIOL [Suspect]
     Active Substance: ESTRADIOL
     Indication: Product used for unknown indication
  2. VITAMIN D [Suspect]
     Active Substance: VITAMIN D NOS
     Indication: Product used for unknown indication
  3. TERIPARATIDE [Suspect]
     Active Substance: TERIPARATIDE
     Indication: Osteoporosis
     Route: 058
  4. LEVOTHYROXINE SODIUM [Suspect]
     Active Substance: LEVOTHYROXINE SODIUM
     Indication: Product used for unknown indication
  5. MELATONIN [Concomitant]
     Active Substance: MELATONIN
     Indication: Product used for unknown indication
  6. Cal-citrate [Concomitant]
     Indication: Product used for unknown indication
  7. LOVASTATIN [Concomitant]
     Active Substance: LOVASTATIN
     Indication: Product used for unknown indication
  8. FAMOTIDINE [Concomitant]
     Active Substance: FAMOTIDINE
     Indication: Product used for unknown indication
  9. ALLEGRA [Concomitant]
     Active Substance: FEXOFENADINE HYDROCHLORIDE
     Indication: Hypersensitivity

REACTIONS (1)
  - Diarrhoea [Unknown]

NARRATIVE: CASE EVENT DATE: 20240201
